FAERS Safety Report 14727691 (Version 1)
Quarter: 2018Q2

REPORT INFORMATION
  Report Type: Spontaneous
  Country: US (occurrence: US)
  Receive Date: 20180406
  Receipt Date: 20180406
  Transmission Date: 20180711
  Serious: Yes (Death, Hospitalization)
  Sender: FDA-Public Use
  Company Number: US-JNJFOC-20180333432

PATIENT
  Age: 60 Year
  Sex: Male

DRUGS (1)
  1. XARELTO [Suspect]
     Active Substance: RIVAROXABAN
     Indication: PULMONARY EMBOLISM
     Dosage: 15MG AND 20MG
     Route: 048
     Dates: start: 20170514, end: 20170623

REACTIONS (3)
  - Gastrointestinal haemorrhage [Unknown]
  - Cerebrovascular accident [Fatal]
  - Epistaxis [Unknown]

NARRATIVE: CASE EVENT DATE: 20170606
